FAERS Safety Report 4714254-5 (Version None)
Quarter: 2005Q2

REPORT INFORMATION
  Report Type: 
  Country: None (occurrence: None)
  Receive Date: 20050630
  Receipt Date: 20040809
  Transmission Date: 20051028
  Serious: Yes (Other)
  Sender: FDA-Public Use
  Company Number: 377229

PATIENT
  Age: 44 Year
  Sex: Male

DRUGS (6)
  1. KLONOPIN [Suspect]
  2. XYREM [Suspect]
     Dosage: 4.5 GRAM 1 PER DAY ORAL
     Route: 048
  3. PAXIL [Concomitant]
  4. RITALIN [Concomitant]
  5. PROPRANOLOL [Concomitant]
  6. MAXALT [Concomitant]

REACTIONS (1)
  - DYSPNOEA [None]
